FAERS Safety Report 11605987 (Version 1)
Quarter: 2015Q4

REPORT INFORMATION
  Report Type: Spontaneous
  Country: DE (occurrence: DE)
  Receive Date: 20151007
  Receipt Date: 20151007
  Transmission Date: 20160304
  Serious: Yes (Hospitalization)
  Sender: FDA-Public Use
  Company Number: DE-009507513-1509DEU012682

PATIENT
  Age: 62 Year
  Sex: Male

DRUGS (13)
  1. MELPERONE [Suspect]
     Active Substance: MELPERONE
     Dosage: 50 MG, QD
     Route: 048
     Dates: start: 20141220, end: 20141222
  2. REMERGIL [Suspect]
     Active Substance: MIRTAZAPINE
     Dosage: 7.5 MG, QD
     Route: 048
     Dates: end: 20141211
  3. REMERGIL [Suspect]
     Active Substance: MIRTAZAPINE
     Dosage: 15 MG, QD
     Route: 048
     Dates: start: 20141230
  4. ZYPREXA [Suspect]
     Active Substance: OLANZAPINE
     Dosage: 2.5 MG, QD
     Route: 048
     Dates: start: 20141215
  5. ZYPREXA [Suspect]
     Active Substance: OLANZAPINE
     Dosage: 5 MG, QD
     Route: 048
     Dates: start: 20141216, end: 20141222
  6. TERAZID [Concomitant]
     Dosage: 2 G, QD
     Dates: end: 20141218
  7. TERAZID [Concomitant]
     Dosage: 4 MG, QD
     Dates: start: 20141219
  8. REMERGIL [Suspect]
     Active Substance: MIRTAZAPINE
     Dosage: 15 MG, QD
     Route: 048
     Dates: start: 20141212, end: 20141218
  9. MELPERONE [Suspect]
     Active Substance: MELPERONE
     Dosage: 25 MG, QD
     Route: 048
     Dates: start: 20141223, end: 20141229
  10. TAVOR [Concomitant]
     Active Substance: LORAZEPAM
     Dosage: 0.5 MG, QD
     Route: 048
  11. REMERGIL [Suspect]
     Active Substance: MIRTAZAPINE
     Dosage: 30 MG, QD
     Route: 048
     Dates: start: 20141219, end: 20141229
  12. FLUVOXAMINE MALEATE. [Suspect]
     Active Substance: FLUVOXAMINE MALEATE
     Dosage: 50 MG, QD
     Route: 048
  13. MELPERONE [Suspect]
     Active Substance: MELPERONE
     Dosage: 25 MG, QD
     Route: 048
     Dates: start: 20141219

REACTIONS (1)
  - Urinary hesitation [Recovered/Resolved]

NARRATIVE: CASE EVENT DATE: 20141223
